FAERS Safety Report 24095902 (Version 1)
Quarter: 2024Q3

REPORT INFORMATION
  Report Type: Spontaneous
  Country: US (occurrence: US)
  Receive Date: 20240716
  Receipt Date: 20240716
  Transmission Date: 20241017
  Serious: No
  Sender: SANOFI AVENTIS
  Company Number: US-SA-SAC20240711000060

PATIENT
  Age: 21 Year
  Sex: Female
  Weight: 61 kg

DRUGS (8)
  1. DUPIXENT [Suspect]
     Active Substance: DUPILUMAB
     Indication: Illness
     Dosage: 300 MG, QOW
     Route: 058
     Dates: start: 20240409
  2. CYCLOBENZAPRINE HYDROCHLORIDE [Concomitant]
     Active Substance: CYCLOBENZAPRINE HYDROCHLORIDE
  3. PIMECROLIMUS [Concomitant]
     Active Substance: PIMECROLIMUS
  4. FLUOCINOLONE ACETONIDE [Concomitant]
     Active Substance: FLUOCINOLONE ACETONIDE
  5. TRIAMCINOLONE ACETONIDE [Concomitant]
     Active Substance: TRIAMCINOLONE ACETONIDE
  6. CLOBETASOL PROPIONATE [Concomitant]
     Active Substance: CLOBETASOL PROPIONATE
  7. FLUOXETINE HYDROCHLORIDE [Concomitant]
     Active Substance: FLUOXETINE HYDROCHLORIDE
  8. TRI LO MILI [Concomitant]
     Dosage: UNK, TID

REACTIONS (5)
  - Dry skin [Unknown]
  - Sleep disorder due to a general medical condition [Unknown]
  - Skin exfoliation [Unknown]
  - Pruritus [Unknown]
  - Pain of skin [Unknown]

NARRATIVE: CASE EVENT DATE: 20240101
